FAERS Safety Report 24774835 (Version 2)
Quarter: 2025Q1

REPORT INFORMATION
  Report Type: Spontaneous
  Country: PT (occurrence: PT)
  Receive Date: 20241226
  Receipt Date: 20250105
  Transmission Date: 20250408
  Serious: Yes (Other)
  Sender: AUROBINDO
  Company Number: PT-INFARMED-T202412-32

PATIENT
  Age: 2 Year
  Sex: Female
  Weight: 12.2 kg

DRUGS (1)
  1. CETIRIZINE [Suspect]
     Active Substance: CETIRIZINE HYDROCHLORIDE
     Indication: Otitis media
     Dosage: 2.5 MILLILITER, ONCE A DAY
     Route: 048
     Dates: start: 20241106, end: 20241202

REACTIONS (1)
  - Dysphemia [Recovered/Resolved]

NARRATIVE: CASE EVENT DATE: 20241122
